FAERS Safety Report 6848346-1 (Version None)
Quarter: 2010Q3

REPORT INFORMATION
  Report Type: 
  Country: None (occurrence: None)
  Receive Date: 20100716
  Receipt Date: 20100706
  Transmission Date: 20110219
  Serious: Yes (Hospitalization)
  Sender: FDA-Public Use
  Company Number: US-ROCHE-713560

PATIENT
  Sex: Female
  Weight: 94.9 kg

DRUGS (2)
  1. TOCILIZUMAB [Suspect]
     Indication: RHEUMATOID ARTHRITIS
     Route: 065
  2. ACETYLSALICYLIC ACID [Concomitant]
     Dosage: FREQUENCY : DAILY

REACTIONS (1)
  - CHEST PAIN [None]
